FAERS Safety Report 9410744 (Version 1)
Quarter: 2013Q3

REPORT INFORMATION
  Report Type: Spontaneous
  Country: GB (occurrence: GB)
  Receive Date: 20130719
  Receipt Date: 20130719
  Transmission Date: 20140515
  Serious: Yes (Hospitalization, Other)
  Sender: FDA-Public Use
  Company Number: GB-ABBOTT-13P-167-1117777-00

PATIENT
  Age: 47 Year
  Sex: Male

DRUGS (2)
  1. HUMIRA [Suspect]
     Indication: PSORIATIC ARTHROPATHY
     Dates: start: 20130612, end: 20130626
  2. METHOTREXATE [Concomitant]
     Indication: PSORIATIC ARTHROPATHY

REACTIONS (6)
  - Generalised oedema [Unknown]
  - Rash generalised [Recovering/Resolving]
  - Liver function test abnormal [Recovering/Resolving]
  - Neutropenia [Unknown]
  - Pyrexia [Unknown]
  - Exposure to toxic agent [Unknown]
